FAERS Safety Report 8841422 (Version 1)
Quarter: 2012Q4

REPORT INFORMATION
  Report Type: 
  Country: AU (occurrence: AU)
  Receive Date: 20121015
  Receipt Date: 20121015
  Transmission Date: 20130627
  Serious: Yes (Hospitalization)
  Sender: FDA-Public Use
  Company Number: PHHY2012AU090963

PATIENT
  Age: 60 Year
  Sex: Male

DRUGS (3)
  1. ACLASTA [Suspect]
     Indication: OSTEOPOROSIS
     Dosage: 5 mg
     Route: 042
     Dates: start: 20100824
  2. ACLASTA [Suspect]
     Dosage: 5 mg
     Route: 042
     Dates: start: 20110819
  3. ACLASTA [Suspect]
     Dosage: 5 mg
     Route: 042
     Dates: start: 20120724

REACTIONS (3)
  - Infection [Unknown]
  - Dehydration [Unknown]
  - Diarrhoea [Unknown]
